FAERS Safety Report 6291409 (Version 3)
Quarter: 2012Q4

REPORT INFORMATION
  Report Type: 
  Country: US (occurrence: US)
  Receive Date: 20070418
  Receipt Date: 20121016
  Transmission Date: 20130627
  Serious: Yes (Other)
  Sender: FDA-Public Use
  Company Number: US-PFIZER INC-2007028453

PATIENT
  Age: 55 Year
  Sex: Female
  Weight: 69 kg

DRUGS (14)
  1. PROVERA [Suspect]
     Indication: HORMONE REPLACEMENT THERAPY
     Dosage: 2.5 mg, UNK
     Route: 048
     Dates: start: 1994
  2. PROVERA [Suspect]
     Dosage: 2.5 mg, UNK
     Route: 048
     Dates: start: 1996, end: 1999
  3. PREMPRO [Suspect]
     Indication: HORMONE REPLACEMENT THERAPY
     Dosage: 0.625/5mg
     Route: 048
     Dates: start: 1988, end: 1988
  4. PREMARIN [Suspect]
     Indication: HORMONE REPLACEMENT THERAPY
     Dosage: 0.625 mg, UNK
     Route: 048
     Dates: start: 1988, end: 1994
  5. PREMARIN [Suspect]
     Dosage: 0.625 mg, UNK
     Route: 048
     Dates: start: 2004, end: 2004
  6. ESTROPIPATE [Suspect]
     Indication: HORMONE REPLACEMENT THERAPY
     Dosage: 1.25 mg, UNK
     Route: 048
     Dates: start: 1999, end: 1999
  7. MEDROXYPROGESTERONE ACETATE [Suspect]
     Indication: HORMONE REPLACEMENT THERAPY
     Dosage: 2.5 mg, UNK
     Route: 048
     Dates: start: 1994
  8. MEDROXYPROGESTERONE ACETATE [Suspect]
     Dosage: 2.5 mg, UNK
     Route: 048
     Dates: start: 1996, end: 1999
  9. CYCRIN [Suspect]
     Indication: HORMONE REPLACEMENT THERAPY
     Dosage: UNK
     Route: 048
  10. ORTHO-EST [Suspect]
     Indication: HORMONE REPLACEMENT THERAPY
     Dosage: 1.25 mg, UNK
     Route: 048
     Dates: start: 1997, end: 1998
  11. ORTHO-EST [Suspect]
     Dosage: 1.25 mg, UNK
     Route: 048
     Dates: start: 2000, end: 2000
  12. ESTRATAB [Suspect]
     Indication: HORMONE REPLACEMENT THERAPY
     Dosage: 0.625 mg, UNK
     Route: 048
     Dates: start: 1999, end: 1999
  13. TRIEST [Suspect]
     Indication: HORMONE REPLACEMENT THERAPY
     Dosage: 5mg/100mg
     Route: 048
     Dates: start: 19990825, end: 20010312
  14. PROMETRIUM [Suspect]
     Indication: HORMONE REPLACEMENT THERAPY
     Dosage: 100 mg, UNK
     Route: 048
     Dates: start: 1999, end: 1999

REACTIONS (1)
  - Breast cancer female [Unknown]
